FAERS Safety Report 10142116 (Version 2)
Quarter: 2014Q2

REPORT INFORMATION
  Report Type: Report from Study
  Country: JP (occurrence: JP)
  Receive Date: 20140429
  Receipt Date: 20140429
  Transmission Date: 20141212
  Serious: Yes (Other)
  Sender: FDA-Public Use
  Company Number: JP-SHIONOGI, INC-2014000273

PATIENT
  Age: 13 Year
  Sex: Female
  Weight: 16 kg

DRUGS (28)
  1. FINIBAX [Suspect]
     Indication: PNEUMONIA
     Dosage: 500 MG, TID
     Route: 041
     Dates: start: 20140122, end: 20140203
  2. OZEX /01070602/ [Suspect]
     Indication: PNEUMONIA
     Route: 048
     Dates: start: 20140115, end: 20140220
  3. ROCEPHIN [Suspect]
     Indication: PNEUMONIA
     Dosage: 0.5 G, BID
     Route: 065
     Dates: start: 20140120, end: 20140122
  4. MIDAZOLAM [Concomitant]
     Indication: PNEUMONIA
     Dosage: 96 MG, QD
     Route: 065
     Dates: start: 20140122, end: 20140126
  5. PREDONINE                          /00016201/ [Concomitant]
     Indication: PNEUMONIA
     Dosage: 30 MG, QD
     Route: 065
     Dates: start: 20140123, end: 20140126
  6. FAMOTIDINE [Concomitant]
     Indication: PROPHYLAXIS
     Dosage: 20 MG, QD
     Route: 065
     Dates: start: 20140122, end: 20140202
  7. NOBELBAR [Concomitant]
     Indication: EPILEPSY
     Dosage: 250 MG, QD
     Route: 065
     Dates: start: 20140122, end: 20140124
  8. HYSERENIN [Concomitant]
     Indication: EPILEPSY
     Dosage: 240 MG, QD
     Route: 048
  9. HYSERENIN [Concomitant]
     Route: 048
  10. MYSTAN [Concomitant]
     Indication: EPILEPSY
     Dosage: 4 MG, QD
     Route: 048
  11. MYSTAN [Concomitant]
     Route: 048
  12. LAC-B [Concomitant]
     Indication: ENTEROCOLITIS
     Dosage: 1.5 G, QD
     Route: 048
  13. LAC-B [Concomitant]
     Route: 048
  14. PHENOBARBITAL [Concomitant]
     Indication: EPILEPSY
     Dosage: 20 MG, QD
     Route: 048
  15. PHENOBARBITAL [Concomitant]
     Route: 048
  16. GASTER                             /00661201/ [Concomitant]
     Indication: GASTROOESOPHAGEAL REFLUX DISEASE
     Dosage: 10 MG, QD
     Route: 048
  17. LIORESAL [Concomitant]
     Indication: CEREBRAL PALSY
     Dosage: 5 MG, QD
     Route: 048
  18. LIORESAL [Concomitant]
     Route: 048
  19. INCREMIN                           /00023544/ [Concomitant]
     Indication: IRON DEFICIENCY ANAEMIA
     Dosage: 12 ML, QD
     Route: 048
  20. ULCERLMIN [Concomitant]
     Indication: GASTROOESOPHAGEAL REFLUX DISEASE
     Dosage: 15 ML, QD
     Route: 048
  21. ULCERLMIN [Concomitant]
     Indication: GASTROOESOPHAGEAL REFLUX DISEASE
     Route: 048
  22. L CARTIN [Concomitant]
     Indication: EPILEPSY
     Dosage: 3 ML, QD
     Route: 048
  23. ALBUMINAR [Concomitant]
     Indication: PNEUMONIA
     Dosage: 12.5 G, QD
     Route: 065
     Dates: start: 20140122, end: 20140124
  24. MEPTIN [Concomitant]
     Indication: PNEUMONIA
     Dosage: 1.8 ML, QD
     Route: 055
     Dates: start: 20140127, end: 20140206
  25. ALEVAIRE [Concomitant]
     Indication: PNEUMONIA
     Dosage: 12 ML, QD
     Route: 065
     Dates: start: 20140127, end: 20140206
  26. HOKUNALIN                          /00654901/ [Concomitant]
     Indication: PNEUMONIA
     Dosage: 1 MG, QD
     Route: 062
     Dates: start: 20140123, end: 20140206
  27. MIYA BM [Concomitant]
     Indication: PROPHYLAXIS
     Dosage: 1.5 G, QD
     Route: 048
     Dates: start: 20140123, end: 20140206
  28. MIYA BM [Concomitant]
     Indication: DIARRHOEA

REACTIONS (4)
  - Dermatitis bullous [Recovered/Resolved]
  - Diarrhoea [Recovered/Resolved]
  - Hepatic function abnormal [Recovered/Resolved]
  - Platelet count increased [Unknown]
